FAERS Safety Report 19826695 (Version 1)
Quarter: 2021Q3

REPORT INFORMATION
  Report Type: Spontaneous
  Country: FR (occurrence: FR)
  Receive Date: 20210913
  Receipt Date: 20210913
  Transmission Date: 20211014
  Serious: Yes (Hospitalization)
  Sender: FDA-Public Use
  Company Number: FR-UCBSA-2021042936

PATIENT
  Age: 55 Year
  Sex: Male
  Weight: 87 kg

DRUGS (2)
  1. CEFOTAXIME [Suspect]
     Active Substance: CEFOTAXIME SODIUM
     Indication: PNEUMONIA PNEUMOCOCCAL
     Dosage: 2 GRAM, ONCE DAILY (QD)
     Route: 042
     Dates: start: 20210804, end: 20210812
  2. KEPPRA [Suspect]
     Active Substance: LEVETIRACETAM
     Indication: SEIZURE
     Dosage: 1G, DECREASE TO 750 MG
     Route: 048
     Dates: start: 20210822

REACTIONS (1)
  - Pancytopenia [Unknown]

NARRATIVE: CASE EVENT DATE: 20210822
